FAERS Safety Report 9155454 (Version 1)
Quarter: 2013Q1

REPORT INFORMATION
  Report Type: Spontaneous
  Country: US (occurrence: US)
  Receive Date: 20130311
  Receipt Date: 20130311
  Transmission Date: 20140127
  Serious: No
  Sender: FDA-Public Use
  Company Number: US-ENDO PHARMACEUTICALS INC.-OPCR20130014

PATIENT
  Sex: Male

DRUGS (2)
  1. OPANA ER [Suspect]
     Indication: PAIN IN EXTREMITY
     Route: 048
     Dates: start: 2012
  2. OPANA ER [Suspect]
     Indication: BACK PAIN

REACTIONS (1)
  - No adverse event [Not Recovered/Not Resolved]
